FAERS Safety Report 5745162-9 (Version None)
Quarter: 2008Q2

REPORT INFORMATION
  Report Type: 
  Country: None (occurrence: None)
  Receive Date: 20080521
  Receipt Date: 20080515
  Transmission Date: 20081010
  Serious: Yes (Life-Threatening)
  Sender: FDA-Public Use
  Company Number: PHHY2008SE08217

PATIENT

DRUGS (2)
  1. SANDOSTATIN [Suspect]
     Dosage: 100 UG, UNK
     Route: 058
  2. SANDOSTATIN LAR [Suspect]

REACTIONS (1)
  - CARDIAC ARREST [None]
